FAERS Safety Report 6507724-0 (Version None)
Quarter: 2009Q4

REPORT INFORMATION
  Report Type: 
  Country: None (occurrence: None)
  Receive Date: 20091221
  Receipt Date: 20091216
  Transmission Date: 20100525
  Serious: Yes (Death, Hospitalization)
  Sender: FDA-Public Use
  Company Number: US-CELGENEUS-163-21880-09112218

PATIENT
  Sex: Male

DRUGS (4)
  1. REVLIMID [Suspect]
     Indication: MULTIPLE MYELOMA
     Route: 048
     Dates: start: 20091101, end: 20091120
  2. REVLIMID [Suspect]
     Dosage: 5MG - 10MG
     Route: 048
     Dates: start: 20080801, end: 20080101
  3. REVLIMID [Suspect]
     Route: 048
     Dates: start: 20090301
  4. REVLIMID [Suspect]
     Route: 048
     Dates: start: 20091130

REACTIONS (2)
  - DEATH [None]
  - PNEUMONIA [None]
